FAERS Safety Report 20703843 (Version 2)
Quarter: 2022Q2

REPORT INFORMATION
  Report Type: Report from Study
  Country: US (occurrence: US)
  Receive Date: 20220413
  Receipt Date: 20220520
  Transmission Date: 20220721
  Serious: Yes (Life-Threatening, Hospitalization, Disabling, Other)
  Sender: FDA-Public Use
  Company Number: US-Accord-260093

PATIENT
  Age: 71 Year
  Sex: Female
  Weight: 66.4 kg

DRUGS (8)
  1. CLOZAPINE [Suspect]
     Active Substance: CLOZAPINE
     Indication: Schizoaffective disorder bipolar type
     Dosage: DRUG STARTED 8 YEARS AGO
     Route: 048
     Dates: end: 20220218
  2. TRILEPTAL [Concomitant]
     Active Substance: OXCARBAZEPINE
     Indication: Schizoaffective disorder
     Dosage: DRUG STARTED 8 YEAR AGO
     Route: 048
     Dates: end: 202203
  3. LORAZEPAM [Concomitant]
     Active Substance: LORAZEPAM
     Indication: Schizoaffective disorder
     Dosage: BD, DRUG STARTED 2 YEARS AGO
     Route: 048
     Dates: end: 202203
  4. FUROSEMIDE [Concomitant]
     Active Substance: FUROSEMIDE
  5. NEXIUM [Concomitant]
     Active Substance: ESOMEPRAZOLE MAGNESIUM
  6. LIPITOR [Concomitant]
     Active Substance: ATORVASTATIN CALCIUM
  7. ATENOLOL [Concomitant]
     Active Substance: ATENOLOL
  8. BENZTROPINE [Concomitant]
     Active Substance: BENZTROPINE

REACTIONS (4)
  - Anaemia [Recovered/Resolved with Sequelae]
  - Neutropenia [Recovered/Resolved with Sequelae]
  - Cellulitis [Unknown]
  - Psychotic disorder [Unknown]

NARRATIVE: CASE EVENT DATE: 20220201
